FAERS Safety Report 20994487 (Version 1)
Quarter: 2022Q2

REPORT INFORMATION
  Report Type: Spontaneous
  Country: BE (occurrence: BE)
  Receive Date: 20220622
  Receipt Date: 20220622
  Transmission Date: 20220721
  Serious: Yes (Other)
  Sender: FDA-Public Use
  Company Number: BE-PFM-2022-04199

PATIENT
  Age: 68 Year
  Sex: Female

DRUGS (15)
  1. TRASTUZUMAB [Suspect]
     Active Substance: TRASTUZUMAB
     Indication: Breast cancer metastatic
     Dosage: 600 MILLIGRAM, (600 MG, UNK)
     Route: 058
     Dates: start: 20220218
  2. FULVESTRANT [Suspect]
     Active Substance: FULVESTRANT
     Indication: Breast cancer metastatic
     Dosage: 250 MG, BID (2/DAY)
     Route: 030
     Dates: start: 20220218
  3. NERLYNX [Suspect]
     Active Substance: NERATINIB
     Indication: HER2 positive breast cancer
     Dosage: 240 MG, QD (1/DAY)
     Route: 048
     Dates: start: 20220218
  4. NERLYNX [Suspect]
     Active Substance: NERATINIB
     Dosage: 200 MG (5 TABLETS), QD (1/DAY)
     Route: 048
     Dates: end: 20220512
  5. METFORMIN HYDROCHLORIDE [Concomitant]
     Active Substance: METFORMIN HYDROCHLORIDE
     Indication: Diabetes mellitus
     Dosage: 850 MILLIGRAM, BID (850 MG, BID (2/DAY))
     Route: 048
     Dates: start: 202111
  6. BUMETANIDE [Concomitant]
     Active Substance: BUMETANIDE
     Indication: Product used for unknown indication
     Dosage: 1 MILLIGRAM, QD (1 MG, QD (1/DAY))
     Route: 048
  7. VISTA CAL D [Concomitant]
     Indication: Product used for unknown indication
     Dosage: UNK, BID (UNK, BID (2/DAY) )
     Route: 048
  8. ALLOPURINOL [Concomitant]
     Active Substance: ALLOPURINOL
     Indication: Product used for unknown indication
     Dosage: 300 MILLIGRAM, QD, (300 MG, QD (1/DAY))
     Route: 048
  9. PROLIA [Concomitant]
     Active Substance: DENOSUMAB
     Indication: Osteoporosis
     Dosage: UNK
     Route: 048
  10. ALDACTONE [Concomitant]
     Active Substance: SPIRONOLACTONE
     Indication: Product used for unknown indication
     Dosage: 25 MG, QD (1/DAY)
     Route: 048
  11. DAFALGAN [Concomitant]
     Active Substance: ACETAMINOPHEN
     Indication: Product used for unknown indication
     Dosage: 1000 MG, PRN
     Route: 048
  12. Pantomed [Concomitant]
     Indication: Gastrooesophageal reflux disease
     Dosage: 40 MILLIGRAM, QD, (40 MG, QD (1/DAY))
     Route: 048
     Dates: start: 20171205
  13. ENTOCORT [Concomitant]
     Active Substance: BUDESONIDE
     Indication: Product used for unknown indication
     Dosage: UNK, (3 MG 3 CO/DAY IN MORNING)
     Route: 048
  14. RIVOTRIL [Concomitant]
     Active Substance: CLONAZEPAM
     Indication: Product used for unknown indication
     Dosage: 0.5 MILLIGRAM, QD (.5 MG, QD (1/DAY))
     Route: 048
  15. XGEVA [Concomitant]
     Active Substance: DENOSUMAB
     Indication: Product used for unknown indication
     Dosage: 120 MILLIGRAM, (120 MG, UNK)
     Route: 058

REACTIONS (4)
  - Leukopenia [Recovered/Resolved]
  - Neutropenia [Recovered/Resolved]
  - Product use in unapproved indication [Unknown]
  - Off label use [Unknown]

NARRATIVE: CASE EVENT DATE: 20220331
